FAERS Safety Report 14583805 (Version 1)
Quarter: 2018Q1

REPORT INFORMATION
  Report Type: Spontaneous
  Country: DE (occurrence: DE)
  Receive Date: 20180228
  Receipt Date: 20180228
  Transmission Date: 20180509
  Serious: Yes (Other)
  Sender: FDA-Public Use
  Company Number: DE-GLAXOSMITHKLINE-DE2018GSK031663

PATIENT
  Age: 32 Year
  Sex: Female

DRUGS (1)
  1. CEFUROXIM [Suspect]
     Active Substance: CEFUROXIME
     Indication: INFECTIOUS MONONUCLEOSIS
     Dosage: 500 MG, 1D
     Route: 048

REACTIONS (2)
  - Maternal exposure during breast feeding [Recovered/Resolved]
  - Breast milk discolouration [Recovered/Resolved]
